FAERS Safety Report 8391544 (Version 4)
Quarter: 2013Q1

REPORT INFORMATION
  Report Type: Spontaneous
  Country: US (occurrence: US)
  Receive Date: 20120206
  Receipt Date: 20130218
  Transmission Date: 20140127
  Serious: Yes (Hospitalization)
  Sender: FDA-Public Use
  Company Number: US-ELI_LILLY_AND_COMPANY-US201201008260

PATIENT
  Sex: Female

DRUGS (5)
  1. FORTEO [Suspect]
     Indication: OSTEOPOROSIS
     Dosage: 20 UG, QD
     Dates: start: 201111
  2. FORTEO [Suspect]
     Dosage: 20 UG, QD
     Dates: start: 201111
  3. FORTEO [Suspect]
     Dosage: 20 UG, QD
     Dates: start: 201111
  4. WELLBUTRIN [Concomitant]
  5. PREDNISONE [Concomitant]
     Dosage: UNK

REACTIONS (19)
  - Amnesia [Unknown]
  - Weight decreased [Unknown]
  - Anxiety [Unknown]
  - Nervousness [Unknown]
  - Heart rate increased [Unknown]
  - Dizziness [Unknown]
  - Nausea [Unknown]
  - Weight increased [Unknown]
  - Abdominal pain [Unknown]
  - Abdominal distension [Unknown]
  - Skin disorder [Unknown]
  - Fatigue [Unknown]
  - Muscle spasms [Unknown]
  - Arthralgia [Unknown]
  - Injection site swelling [Unknown]
  - Chronic obstructive pulmonary disease [Unknown]
  - Tooth disorder [Unknown]
  - Dementia [Unknown]
  - Tremor [Recovered/Resolved]
